FAERS Safety Report 18486297 (Version 1)
Quarter: 2020Q4

REPORT INFORMATION
  Report Type: Spontaneous
  Country: US (occurrence: US)
  Receive Date: 20201110
  Receipt Date: 20201110
  Transmission Date: 20210114
  Serious: No
  Sender: FDA-Public Use
  Company Number: US-ENDO PHARMACEUTICALS INC-2020-000774

PATIENT
  Sex: Female

DRUGS (1)
  1. ALPRAZOLAM. [Suspect]
     Active Substance: ALPRAZOLAM
     Indication: ANXIETY DISORDER
     Dosage: 0.5 MG, TID
     Route: 065

REACTIONS (2)
  - Parosmia [Unknown]
  - Feeling abnormal [Unknown]
